FAERS Safety Report 4484088-8 (Version None)
Quarter: 2004Q4

REPORT INFORMATION
  Report Type: 
  Country: None (occurrence: None)
  Receive Date: 20041025
  Receipt Date: 20041014
  Transmission Date: 20050328
  Serious: Yes (Life-Threatening, Hospitalization, Other)
  Sender: FDA-Public Use
  Company Number: FR-JNJFOC-20040909059

PATIENT
  Age: 62 Year
  Sex: Female
  Weight: 56 kg

DRUGS (18)
  1. REMICADE [Suspect]
     Route: 042
  2. REMICADE [Suspect]
     Route: 042
  3. REMICADE [Suspect]
     Route: 042
  4. REMICADE [Suspect]
     Route: 042
  5. REMICADE [Suspect]
     Route: 042
  6. REMICADE [Suspect]
     Route: 042
  7. REMICADE [Suspect]
     Route: 042
  8. REMICADE [Suspect]
     Route: 042
  9. REMICADE [Suspect]
     Indication: RHEUMATOID ARTHRITIS
     Route: 042
  10. METHOTREXATE [Concomitant]
     Indication: RHEUMATOID ARTHRITIS
  11. CORTANCYL [Concomitant]
     Indication: RHEUMATOID ARTHRITIS
  12. BIPROFENID [Concomitant]
     Indication: RHEUMATOID ARTHRITIS
  13. CLIMASTON [Concomitant]
  14. CLIMASTON [Concomitant]
  15. FOLIC ACID [Concomitant]
  16. CALCID D3 [Concomitant]
  17. CALCID D3 [Concomitant]
  18. ACETAMINOPHEN [Concomitant]

REACTIONS (7)
  - LUNG DISORDER [None]
  - METASTASES TO LIVER [None]
  - METASTASES TO PERITONEUM [None]
  - OVARIAN CANCER METASTATIC [None]
  - PELVIC MASS [None]
  - RECTAL HAEMORRHAGE [None]
  - VENA CAVA THROMBOSIS [None]
